FAERS Safety Report 15481781 (Version 5)
Quarter: 2020Q4

REPORT INFORMATION
  Report Type: Report from Study
  Country: US (occurrence: US)
  Receive Date: 20181010
  Receipt Date: 20201022
  Transmission Date: 20210113
  Serious: Yes (Death)
  Sender: FDA-Public Use
  Company Number: US-ROCHE-2194451

PATIENT
  Age: 76 Year
  Sex: Male
  Weight: 74.3 kg

DRUGS (32)
  1. CARBOPLATIN. [Suspect]
     Active Substance: CARBOPLATIN
     Indication: NON-SMALL CELL LUNG CANCER
     Dosage: DAY 1 CYCLE 1
     Route: 042
     Dates: start: 20180212
  2. CARBOPLATIN. [Suspect]
     Active Substance: CARBOPLATIN
     Dosage: DAY 8 CYCLE 1
     Route: 042
     Dates: start: 20180219
  3. PACLITAXEL. [Suspect]
     Active Substance: PACLITAXEL
     Dosage: DAY 15 CYCLE 1
     Route: 042
     Dates: start: 20180226
  4. ASPRIN [Concomitant]
     Active Substance: ASPIRIN
     Route: 048
     Dates: start: 20180929
  5. ATORVASTATIN [Concomitant]
     Active Substance: ATORVASTATIN
     Route: 048
  6. ATEZOLIZUMAB. [Suspect]
     Active Substance: ATEZOLIZUMAB
     Route: 042
     Dates: start: 20180612
  7. CARBOPLATIN. [Suspect]
     Active Substance: CARBOPLATIN
     Dosage: DAY 29 CYCLE 1
     Route: 042
     Dates: start: 20180312
  8. PACLITAXEL. [Suspect]
     Active Substance: PACLITAXEL
     Dosage: DAY 22 CYCLE 1
     Route: 042
     Dates: start: 20180305
  9. PACLITAXEL. [Suspect]
     Active Substance: PACLITAXEL
     Dosage: DAY 29 CYCLE 1
     Route: 042
     Dates: start: 20180312
  10. ATEZOLIZUMAB. [Suspect]
     Active Substance: ATEZOLIZUMAB
     Route: 042
     Dates: start: 20180724
  11. PACLITAXEL. [Suspect]
     Active Substance: PACLITAXEL
     Dosage: DAY 8 CYCLE 1
     Route: 042
     Dates: start: 20180219
  12. PREDNISONE. [Concomitant]
     Active Substance: PREDNISONE
     Route: 048
  13. ATEZOLIZUMAB. [Suspect]
     Active Substance: ATEZOLIZUMAB
     Route: 042
     Dates: start: 20180410
  14. ATEZOLIZUMAB. [Suspect]
     Active Substance: ATEZOLIZUMAB
     Route: 042
     Dates: start: 20180814
  15. LISINOPRIL. [Concomitant]
     Active Substance: LISINOPRIL
     Route: 048
     Dates: start: 20180929
  16. ATEZOLIZUMAB. [Suspect]
     Active Substance: ATEZOLIZUMAB
     Indication: NON-SMALL CELL LUNG CANCER
     Dosage: DAY 1 CYCLE 1
     Route: 042
     Dates: start: 20180212
  17. PACLITAXEL. [Suspect]
     Active Substance: PACLITAXEL
     Route: 042
     Dates: start: 20180410
  18. ACETAMINOPHEN. [Concomitant]
     Active Substance: ACETAMINOPHEN
     Route: 048
  19. ATEZOLIZUMAB. [Suspect]
     Active Substance: ATEZOLIZUMAB
     Dosage: DAY 22 CYCLE1
     Route: 042
     Dates: start: 20180305
  20. ATEZOLIZUMAB. [Suspect]
     Active Substance: ATEZOLIZUMAB
     Route: 042
     Dates: start: 20180703
  21. CARBOPLATIN. [Suspect]
     Active Substance: CARBOPLATIN
     Route: 042
     Dates: start: 20180501
  22. PACLITAXEL. [Suspect]
     Active Substance: PACLITAXEL
     Dosage: DAY 36 CYCLE 1
     Route: 042
     Dates: start: 20180319
  23. ATEZOLIZUMAB. [Suspect]
     Active Substance: ATEZOLIZUMAB
     Route: 042
     Dates: start: 20180501
  24. CARBOPLATIN. [Suspect]
     Active Substance: CARBOPLATIN
     Dosage: DAY 15 CYCLE 1
     Route: 042
     Dates: start: 20180226
  25. CARBOPLATIN. [Suspect]
     Active Substance: CARBOPLATIN
     Dosage: DAY 22 CYCLE 1
     Route: 042
     Dates: start: 20180305
  26. PACLITAXEL. [Suspect]
     Active Substance: PACLITAXEL
     Route: 042
     Dates: start: 20180501
  27. CLOPIDOGREL [Concomitant]
     Active Substance: CLOPIDOGREL BISULFATE
     Route: 048
     Dates: start: 20180929
  28. ATEZOLIZUMAB. [Suspect]
     Active Substance: ATEZOLIZUMAB
     Route: 042
     Dates: start: 20180522
  29. CARBOPLATIN. [Suspect]
     Active Substance: CARBOPLATIN
     Dosage: DAY 36 CYCLE 1
     Route: 042
     Dates: start: 20180319
  30. CARBOPLATIN. [Suspect]
     Active Substance: CARBOPLATIN
     Route: 042
     Dates: start: 20180410
  31. PACLITAXEL. [Suspect]
     Active Substance: PACLITAXEL
     Indication: NON-SMALL CELL LUNG CANCER
     Dosage: DAY 1 CYCLE 1
     Route: 042
     Dates: start: 20180212
  32. CARVEDILOL. [Concomitant]
     Active Substance: CARVEDILOL
     Route: 048
     Dates: start: 20180928

REACTIONS (1)
  - Acute myocardial infarction [Fatal]

NARRATIVE: CASE EVENT DATE: 20180926
